FAERS Safety Report 22178653 (Version 3)
Quarter: 2023Q2

REPORT INFORMATION
  Report Type: Report from Study
  Country: US (occurrence: US)
  Receive Date: 20230405
  Receipt Date: 20230606
  Transmission Date: 20230722
  Serious: Yes (Death, Hospitalization, Other)
  Sender: FDA-Public Use
  Company Number: US-ABBVIE-4716287

PATIENT
  Sex: Female
  Weight: 58.966 kg

DRUGS (3)
  1. RINVOQ [Suspect]
     Active Substance: UPADACITINIB
     Indication: Rheumatoid arthritis
     Route: 048
     Dates: start: 2021, end: 20230314
  2. IRON [Concomitant]
     Active Substance: IRON
     Indication: Haemoglobin decreased
     Dates: start: 2022
  3. SODIUM CHLORIDE [Concomitant]
     Active Substance: SODIUM CHLORIDE
     Indication: Product used for unknown indication

REACTIONS (10)
  - Acute respiratory distress syndrome [Fatal]
  - Acute respiratory failure [Fatal]
  - Haemoglobin decreased [Not Recovered/Not Resolved]
  - Interstitial lung disease [Fatal]
  - COVID-19 pneumonia [Fatal]
  - Renal impairment [Fatal]
  - Renal impairment [Not Recovered/Not Resolved]
  - Dyspnoea [Not Recovered/Not Resolved]
  - Fall [Recovered/Resolved]
  - Pulmonary function test abnormal [Not Recovered/Not Resolved]

NARRATIVE: CASE EVENT DATE: 20220101
